FAERS Safety Report 15994232 (Version 2)
Quarter: 2019Q1

REPORT INFORMATION
  Report Type: Report from Study
  Country: CO (occurrence: CO)
  Receive Date: 20190222
  Receipt Date: 20190227
  Transmission Date: 20190418
  Serious: Yes (Death, Hospitalization, Other)
  Sender: FDA-Public Use
  Company Number: CO-SA-2019SA043986

PATIENT
  Age: 6 Year
  Sex: Male

DRUGS (2)
  1. CYTARABINE. [Concomitant]
     Active Substance: CYTARABINE
     Indication: ACUTE LYMPHOCYTIC LEUKAEMIA
     Dosage: UNK UNK, UNK
     Route: 065
  2. CLOFARABINE. [Suspect]
     Active Substance: CLOFARABINE
     Indication: ACUTE LYMPHOCYTIC LEUKAEMIA
     Dosage: 10 AMPOULLES, QD
     Route: 041
     Dates: start: 20190206, end: 20190210

REACTIONS (7)
  - Seizure [Unknown]
  - Dyspnoea [Unknown]
  - Cardiac arrest [Fatal]
  - Hypertension [Unknown]
  - Platelet count decreased [Not Recovered/Not Resolved]
  - Disease progression [Fatal]
  - Generalised oedema [Unknown]

NARRATIVE: CASE EVENT DATE: 201902
